FAERS Safety Report 14992514 (Version 1)
Quarter: 2018Q2

REPORT INFORMATION
  Report Type: Spontaneous
  Country: DE (occurrence: DE)
  Receive Date: 20180609
  Receipt Date: 20180609
  Transmission Date: 20180711
  Serious: Yes (Hospitalization)
  Sender: FDA-Public Use
  Company Number: DE-TEVA-2018-DE-903600

PATIENT
  Age: 88 Year
  Sex: Female
  Weight: 85 kg

DRUGS (7)
  1. MIRTAZAPINE. [Suspect]
     Active Substance: MIRTAZAPINE
     Dosage: 15 MG, 0-0-1-0, TABLET
     Route: 048
  2. HYDROCHLOROTHIAZID [Suspect]
     Active Substance: HYDROCHLOROTHIAZIDE
     Dosage: 25 MG, 1-0-0-0, TABLET
     Route: 048
  3. VALSARTAN. [Suspect]
     Active Substance: VALSARTAN
     Dosage: 160 MG, 0.5-0-0-0, TABLET
     Route: 048
  4. ZEBETA [Suspect]
     Active Substance: BISOPROLOL FUMARATE
     Dosage: 5 MG, 0.5-0-0-0, TABLET
     Route: 048
  5. TORASEMID [Concomitant]
     Active Substance: TORSEMIDE
     Dosage: 10 MG, 1.5-1-0-0, TABLET
     Route: 048
  6. LEVODOPA/BENSERAZID [Concomitant]
     Active Substance: BENSERAZIDE\LEVODOPA
     Dosage: 100|25 MG, 1-1-1-0, TABLET
     Route: 048
  7. PAROXETINE. [Suspect]
     Active Substance: PAROXETINE
     Dosage: 20 MG, 0.5-0-0-0, TABLET
     Route: 048

REACTIONS (4)
  - Syncope [Unknown]
  - Hypotension [Unknown]
  - Memory impairment [Unknown]
  - General physical health deterioration [Unknown]
